FAERS Safety Report 21571609 (Version 2)
Quarter: 2022Q4

REPORT INFORMATION
  Report Type: Spontaneous
  Country: US (occurrence: None)
  Receive Date: 20221109
  Receipt Date: 20221129
  Transmission Date: 20230113
  Serious: No
  Sender: FDA-Public Use
  Company Number: 2022A357228

PATIENT
  Sex: Female

DRUGS (1)
  1. FASENRA [Suspect]
     Active Substance: BENRALIZUMAB
     Indication: Asthma
     Dosage: EVERY 4 WEEKS FOR THE FIRST 3 DOSES, FOLLOWED BY EVERY 8 WEEKS THEREAFTER
     Route: 065

REACTIONS (2)
  - Cough [Recovered/Resolved]
  - Fatigue [Unknown]
